FAERS Safety Report 7641389-X (Version None)
Quarter: 2011Q3

REPORT INFORMATION
  Report Type: 
  Country: None (occurrence: None)
  Receive Date: 20110728
  Receipt Date: 20110719
  Transmission Date: 20111222
  Serious: Yes (Other)
  Sender: FDA-Public Use
  Company Number: US-AMGEN-USASP2011028655

PATIENT
  Age: 52 Year
  Sex: Male

DRUGS (2)
  1. ENBREL [Suspect]
     Indication: RHEUMATOID ARTHRITIS
     Dosage: 50 MG, Q2WK
     Dates: start: 20100801
  2. ENBREL [Suspect]
     Dosage: 50 MG, QWK
     Dates: start: 20100801, end: 20110527

REACTIONS (7)
  - DRY EYE [None]
  - WEIGHT BEARING DIFFICULTY [None]
  - VISION BLURRED [None]
  - EYE IRRITATION [None]
  - EYE INFLAMMATION [None]
  - PAIN IN EXTREMITY [None]
  - OCULAR HYPERAEMIA [None]
